FAERS Safety Report 18128295 (Version 1)
Quarter: 2020Q3

REPORT INFORMATION
  Report Type: Spontaneous
  Country: US (occurrence: US)
  Receive Date: 20200807
  Receipt Date: 20200807
  Transmission Date: 20201103
  Serious: Yes (Other)
  Sender: FDA-Public Use
  Company Number: None

PATIENT
  Age: 74 Year
  Sex: Female
  Weight: 136.1 kg

DRUGS (1)
  1. REMDESIVIR LYOPHILIZED POWDER [Suspect]
     Active Substance: REMDESIVIR
     Indication: COVID-19
     Dates: start: 20200731, end: 20200804

REACTIONS (1)
  - Blood bilirubin increased [None]

NARRATIVE: CASE EVENT DATE: 20200803
